FAERS Safety Report 20654057 (Version 2)
Quarter: 2022Q2

REPORT INFORMATION
  Report Type: Other
  Country: JP (occurrence: JP)
  Receive Date: 20220330
  Receipt Date: 20220621
  Transmission Date: 20220721
  Serious: Yes (Other)
  Sender: FDA-Public Use
  Company Number: JP-CHUGAI-2022011095

PATIENT
  Age: 81 Year
  Sex: Female

DRUGS (3)
  1. POLIVY [Suspect]
     Active Substance: POLATUZUMAB VEDOTIN-PIIQ
     Indication: Diffuse large B-cell lymphoma
     Dosage: 1.8 MILLIGRAM/KILOGRAM, ONCE/3WEEKS
     Route: 041
     Dates: start: 20211028
  2. BENDAMUSTINE HYDROCHLORIDE [Suspect]
     Active Substance: BENDAMUSTINE HYDROCHLORIDE
     Indication: Diffuse large B-cell lymphoma
     Dosage: 90 MILLIGRAM/SQ. METER, ONCE/3WEEKS
     Route: 041
  3. RITUXIMAB [Suspect]
     Active Substance: RITUXIMAB
     Indication: Diffuse large B-cell lymphoma
     Dosage: 375 MILLIGRAM/SQ. METER, ONCE/3WEEKS
     Route: 041

REACTIONS (5)
  - Embolism venous [Not Recovered/Not Resolved]
  - Pancytopenia [Unknown]
  - Oral candidiasis [Recovered/Resolved]
  - Cytomegalovirus gastrointestinal ulcer [Not Recovered/Not Resolved]
  - Tongue ulceration [Not Recovered/Not Resolved]
